FAERS Safety Report 4482172-6 (Version None)
Quarter: 2004Q4

REPORT INFORMATION
  Report Type: 
  Country: None (occurrence: None)
  Receive Date: 20041022
  Receipt Date: 20041013
  Transmission Date: 20050328
  Serious: Yes (Hospitalization)
  Sender: FDA-Public Use
  Company Number: CH-BRISTOL-MYERS SQUIBB COMPANY-12731980

PATIENT
  Age: 49 Year
  Sex: Male

DRUGS (4)
  1. ABILIFY [Suspect]
     Indication: SCHIZOPHRENIA
     Dosage: INITIATED ON 31-AUG-2004 AT 15 MG/DAY, INCREASED TO 30 MG/DAY
     Route: 048
     Dates: start: 20040831, end: 20041004
  2. CLOPIXOL [Concomitant]
     Dosage: TAKEN FOR YEARS
  3. AKINETON RETARD [Concomitant]
     Dosage: TAKEN FOR YEARS
  4. NOZINAN [Concomitant]
     Dosage: TAKEN FOR YEARS

REACTIONS (6)
  - AFFECT LABILITY [None]
  - ANXIETY [None]
  - DECREASED APPETITE [None]
  - ENURESIS [None]
  - FLUID INTAKE REDUCED [None]
  - PSYCHOTIC DISORDER [None]
